FAERS Safety Report 4700666-2 (Version None)
Quarter: 2005Q2

REPORT INFORMATION
  Report Type: 
  Country: None (occurrence: None)
  Receive Date: 20050627
  Receipt Date: 20050322
  Transmission Date: 20051028
  Serious: Yes (Hospitalization)
  Sender: FDA-Public Use
  Company Number: US-MERCK-0503USA04210

PATIENT
  Age: 51 Year
  Sex: Female
  Weight: 93 kg

DRUGS (13)
  1. VIOXX [Suspect]
     Indication: BURSITIS
     Route: 048
     Dates: start: 20020513, end: 20020613
  2. TYLENOL [Concomitant]
     Route: 065
  3. METFORMIN HYDROCHLORIDE [Concomitant]
     Indication: DIABETES MELLITUS
     Route: 065
  4. ATENOLOL MSD [Concomitant]
     Indication: CARDIAC DISORDER
     Route: 048
     Dates: start: 20020101, end: 20050101
  5. PLAVIX [Concomitant]
     Indication: CEREBROVASCULAR ACCIDENT
     Route: 048
     Dates: start: 20020501
  6. ZOCOR [Concomitant]
     Indication: BLOOD CHOLESTEROL INCREASED
     Route: 048
     Dates: start: 20020501
  7. NAPROSYN [Concomitant]
     Indication: PAIN
     Route: 065
     Dates: start: 20020101, end: 20050101
  8. PREMPRO [Concomitant]
     Indication: UTERINE LEIOMYOMA
     Route: 065
     Dates: start: 20020101
  9. LUPRON [Concomitant]
     Indication: UTERINE LEIOMYOMA
     Route: 065
     Dates: start: 20020101, end: 20050101
  10. GINSENG [Concomitant]
     Route: 065
     Dates: start: 20020101, end: 20050101
  11. GINKGO BILOBA EXTRACT [Concomitant]
     Route: 065
     Dates: start: 20020101, end: 20050101
  12. HYPERICIN [Concomitant]
     Route: 065
     Dates: start: 20020101, end: 20050101
  13. GLUCOTROL [Concomitant]
     Route: 065

REACTIONS (11)
  - ABDOMINAL PAIN UPPER [None]
  - ANGINA UNSTABLE [None]
  - BRAIN STEM INFARCTION [None]
  - CORONARY ARTERY DISEASE [None]
  - HEADACHE [None]
  - HYPERTENSION [None]
  - MYOCARDIAL INFARCTION [None]
  - MYOCARDIAL ISCHAEMIA [None]
  - NAUSEA [None]
  - OEDEMA PERIPHERAL [None]
  - RHINORRHOEA [None]
